FAERS Safety Report 10442597 (Version 2)
Quarter: 2014Q3

REPORT INFORMATION
  Report Type: Report from Study
  Country: US (occurrence: US)
  Receive Date: 20140909
  Receipt Date: 20140909
  Transmission Date: 20150326
  Serious: Yes (Other)
  Sender: FDA-Public Use
  Company Number: US-SA-2013SA111395

PATIENT
  Age: 37 Year
  Sex: Female

DRUGS (2)
  1. AUBAGIO [Suspect]
     Active Substance: TERIFLUNOMIDE
     Indication: MULTIPLE SCLEROSIS
     Route: 048
     Dates: start: 20130924, end: 20140214
  2. AUBAGIO [Suspect]
     Active Substance: TERIFLUNOMIDE
     Indication: MULTIPLE SCLEROSIS
     Route: 048
     Dates: start: 201402

REACTIONS (10)
  - Muscular weakness [Unknown]
  - Asthenia [Unknown]
  - Cystitis [Not Recovered/Not Resolved]
  - Speech disorder [Unknown]
  - Drug dose omission [Unknown]
  - Dry skin [Not Recovered/Not Resolved]
  - Menorrhagia [Unknown]
  - Expired product administered [Unknown]
  - Nuclear magnetic resonance imaging abnormal [Unknown]
  - Alopecia [Unknown]

NARRATIVE: CASE EVENT DATE: 201311
